FAERS Safety Report 9537974 (Version 1)
Quarter: 2013Q3

REPORT INFORMATION
  Report Type: Spontaneous
  Country: FR (occurrence: FR)
  Receive Date: 20130919
  Receipt Date: 20130919
  Transmission Date: 20140515
  Serious: Yes (Death)
  Sender: FDA-Public Use
  Company Number: FR-WATSON-2013-16435

PATIENT
  Sex: 0

DRUGS (13)
  1. SIMVASTATIN [Suspect]
     Indication: DYSLIPIDAEMIA
     Dosage: 20 MG, DAILY
     Route: 048
     Dates: end: 20130724
  2. DOCETAXEL EBEWE [Suspect]
     Indication: SQUAMOUS CELL CARCINOMA
     Dosage: 64 MG, DAILY
     Route: 042
     Dates: start: 20130717, end: 20130717
  3. FLUOROURACILE [Suspect]
     Indication: SQUAMOUS CELL CARCINOMA
     Dosage: 650 MG BOLUS
     Route: 042
     Dates: start: 20130717, end: 20130717
  4. FLUOROURACILE [Suspect]
     Dosage: 1600 MG, DAILY
     Route: 042
     Dates: start: 20130717, end: 20130718
  5. CISPLATINE [Suspect]
     Indication: SQUAMOUS CELL CARCINOMA
     Dosage: 65 MG, DAILY
     Route: 042
     Dates: start: 20130717, end: 20130717
  6. SINTROM [Suspect]
     Indication: PRODUCT USED FOR UNKNOWN INDICATION
     Dosage: UNK
     Route: 048
     Dates: end: 20130724
  7. KARDEGIC [Suspect]
     Indication: PRODUCT USED FOR UNKNOWN INDICATION
     Dosage: 75 MG, DAILY
     Route: 048
  8. NEBILOX [Suspect]
     Indication: PRODUCT USED FOR UNKNOWN INDICATION
     Dosage: 5 MG, DAILY
     Route: 048
     Dates: end: 20130724
  9. DUROGESIC [Suspect]
     Indication: ANALGESIC INTERVENTION SUPPORTIVE THERAPY
     Dosage: UNK
     Route: 062
     Dates: end: 20130724
  10. EMEND                              /01627301/ [Concomitant]
     Indication: PRODUCT USED FOR UNKNOWN INDICATION
     Dosage: UNK
     Route: 065
  11. ONDANSETRON [Concomitant]
     Indication: PRODUCT USED FOR UNKNOWN INDICATION
     Dosage: UNK
     Route: 065
  12. SOLUMEDROL [Concomitant]
     Indication: PRODUCT USED FOR UNKNOWN INDICATION
     Dosage: UNK
     Route: 065
  13. LEVOFOLINATE CALCIUM [Concomitant]
     Indication: PRODUCT USED FOR UNKNOWN INDICATION
     Dosage: UNK
     Route: 065

REACTIONS (8)
  - Enterocolitis haemorrhagic [Fatal]
  - Leukopenia [Fatal]
  - Lymphopenia [Fatal]
  - Neutropenia [Fatal]
  - Enterobacter infection [Fatal]
  - Enterobacter sepsis [Fatal]
  - Hypothermia [Fatal]
  - Vomiting [Fatal]
